FAERS Safety Report 25798008 (Version 1)
Quarter: 2025Q3

REPORT INFORMATION
  Report Type: Spontaneous
  Country: US (occurrence: US)
  Receive Date: 20250912
  Receipt Date: 20250912
  Transmission Date: 20251021
  Serious: Yes (Other)
  Sender: ADMA BIOLOGICS
  Company Number: US-ADMA BIOLOGICS INC.-US-2025ADM000284

PATIENT
  Age: 67 Year
  Sex: Female

DRUGS (6)
  1. HUMAN IMMUNOGLOBULIN G [Suspect]
     Active Substance: HUMAN IMMUNOGLOBULIN G
     Indication: Small fibre neuropathy
     Route: 042
  2. HUMAN IMMUNOGLOBULIN G [Suspect]
     Active Substance: HUMAN IMMUNOGLOBULIN G
     Indication: Autonomic nervous system imbalance
  3. HUMAN IMMUNOGLOBULIN G [Suspect]
     Active Substance: HUMAN IMMUNOGLOBULIN G
     Indication: Sarcoidosis
  4. ADALIMUMAB [Concomitant]
     Active Substance: ADALIMUMAB
     Indication: Sarcoidosis
     Route: 065
  5. ADALIMUMAB [Concomitant]
     Active Substance: ADALIMUMAB
     Indication: Small fibre neuropathy
  6. ADALIMUMAB [Concomitant]
     Active Substance: ADALIMUMAB
     Indication: Autonomic nervous system imbalance

REACTIONS (2)
  - Mesenteric artery thrombosis [Unknown]
  - Off label use [Unknown]
